FAERS Safety Report 5877256-1 (Version None)
Quarter: 2008Q3

REPORT INFORMATION
  Report Type: 
  Country: None (occurrence: None)
  Receive Date: 20080828
  Receipt Date: 20080818
  Transmission Date: 20090109
  Serious: No
  Sender: FDA-Public Use
  Company Number: WSDF_00743

PATIENT
  Sex: Female

DRUGS (1)
  1. WINRHO SDF [Suspect]
     Indication: IDIOPATHIC THROMBOCYTOPENIC PURPURA
     Dates: start: 20080723

REACTIONS (2)
  - BACK PAIN [None]
  - WEIGHT DECREASED [None]
